FAERS Safety Report 25594047 (Version 1)
Quarter: 2025Q3

REPORT INFORMATION
  Report Type: Spontaneous
  Country: US (occurrence: US)
  Receive Date: 20250723
  Receipt Date: 20250723
  Transmission Date: 20251020
  Serious: No
  Sender: BRISTOL-MYERS SQUIBB COMPANY
  Company Number: US-BRISTOL-MYERS SQUIBB COMPANY-2025-102742

PATIENT
  Age: 83 Year
  Sex: Female

DRUGS (1)
  1. POMALYST [Suspect]
     Active Substance: POMALIDOMIDE
     Indication: Renal cancer
     Dosage: TAKE 1 CAPSULE BY MOUTH 1 TIME A DAY FOR 21 DAYS ON THEN 7 DAYS OFF FOR 28 DAYS.
     Route: 048
     Dates: start: 202506

REACTIONS (4)
  - Hepatic enzyme increased [Unknown]
  - Joint swelling [Unknown]
  - Rash [Unknown]
  - Off label use [Unknown]
